FAERS Safety Report 22594292 (Version 1)
Quarter: 2023Q2

REPORT INFORMATION
  Report Type: Spontaneous
  Country: US (occurrence: None)
  Receive Date: 20230612
  Receipt Date: 20230612
  Transmission Date: 20230721
  Serious: Yes (Hospitalization)
  Sender: FDA-Public Use
  Company Number: None

PATIENT
  Sex: Male

DRUGS (1)
  1. CAPECITABINE [Suspect]
     Active Substance: CAPECITABINE
     Dosage: OTHER QUANTITY : 1000;?FREQUENCY : TWICE A DAY;?
     Route: 048

REACTIONS (8)
  - Off label use [None]
  - Off label use [None]
  - Dizziness [None]
  - Haemoglobin decreased [None]
  - Intestinal obstruction [None]
  - Weight decreased [None]
  - Decreased appetite [None]
  - Oesophageal pain [None]
